FAERS Safety Report 7503261-5 (Version None)
Quarter: 2011Q2

REPORT INFORMATION
  Report Type: 
  Country: None (occurrence: None)
  Receive Date: 20110525
  Receipt Date: 20110308
  Transmission Date: 20111010
  Serious: No
  Sender: FDA-Public Use
  Company Number: A0917165A

PATIENT
  Sex: Female

DRUGS (2)
  1. BACTROBAN [Suspect]
     Route: 061
  2. NO CONCURRENT MEDICATION [Concomitant]

REACTIONS (1)
  - APPLICATION SITE PRURITUS [None]
